FAERS Safety Report 14024082 (Version 1)
Quarter: 2017Q3

REPORT INFORMATION
  Report Type: Spontaneous
  Country: BR (occurrence: BR)
  Receive Date: 20170929
  Receipt Date: 20170929
  Transmission Date: 20171128
  Serious: Yes (Life-Threatening, Hospitalization, Other)
  Sender: FDA-Public Use
  Company Number: BR-BRISTOL-MYERS SQUIBB COMPANY-BMS-2017-085342

PATIENT
  Age: 20 Year
  Sex: Male
  Weight: 60 kg

DRUGS (1)
  1. HYDREA [Suspect]
     Active Substance: HYDROXYUREA
     Indication: SICKLE CELL ANAEMIA
     Dosage: 500 MG, MORNING AND AT NIGHT
     Route: 048

REACTIONS (6)
  - Sickle cell anaemia with crisis [Unknown]
  - Pneumonia [Unknown]
  - Swelling face [Unknown]
  - Back pain [Unknown]
  - Pain in extremity [Unknown]
  - Peripheral swelling [Unknown]
